FAERS Safety Report 7018714-6 (Version None)
Quarter: 2010Q3

REPORT INFORMATION
  Report Type: 
  Country: None (occurrence: None)
  Receive Date: 20100928
  Receipt Date: 20100826
  Transmission Date: 20110219
  Serious: Yes (Death, Other)
  Sender: FDA-Public Use
  Company Number: BA-BAYER-200833056GPV

PATIENT
  Age: 60 Year
  Sex: Male
  Weight: 61 kg

DRUGS (15)
  1. MABCAMPATH [Suspect]
     Indication: CHRONIC LYMPHOCYTIC LEUKAEMIA
     Dosage: DOSE ESCALATION
     Route: 041
     Dates: start: 20081008
  2. MABCAMPATH [Suspect]
     Dosage: DOSE ESCALATION
     Route: 041
     Dates: start: 20081010
  3. MABCAMPATH [Suspect]
     Route: 041
     Dates: start: 20081012
  4. MABCAMPATH [Suspect]
     Route: 041
     Dates: start: 20081017
  5. MABCAMPATH [Suspect]
     Route: 041
     Dates: start: 20081022
  6. MABCAMPATH [Suspect]
     Route: 041
     Dates: start: 20081027
  7. MABCAMPATH [Suspect]
     Route: 041
     Dates: start: 20081024
  8. MABCAMPATH [Suspect]
     Route: 041
     Dates: start: 20081020
  9. MABCAMPATH [Suspect]
     Route: 041
     Dates: start: 20081015
  10. FLUDARABINE [Suspect]
     Indication: CHRONIC LYMPHOCYTIC LEUKAEMIA
     Route: 065
  11. METHYLPREDNISOLONE ACETATE [Concomitant]
     Indication: PREMEDICATION
     Route: 048
     Dates: start: 20081015, end: 20081027
  12. METHYLPREDNISOLONE ACETATE [Concomitant]
     Route: 048
     Dates: start: 20081008, end: 20081012
  13. PARACETAMOL [Concomitant]
     Indication: PREMEDICATION
     Route: 048
     Dates: start: 20081008, end: 20081027
  14. TRIMETHOPRIM [Concomitant]
     Indication: PROPHYLAXIS
     Dosage: 480/480 MG
     Route: 048
     Dates: start: 20081008, end: 20081027
  15. ACYCLOVIR [Concomitant]
     Indication: PROPHYLAXIS
     Route: 048
     Dates: start: 20081008, end: 20081027

REACTIONS (4)
  - BODY TEMPERATURE INCREASED [None]
  - CANDIDA SEPSIS [None]
  - LUNG INFILTRATION [None]
  - MYELODYSPLASTIC SYNDROME [None]
